FAERS Safety Report 17196120 (Version 1)
Quarter: 2019Q4

REPORT INFORMATION
  Report Type: Spontaneous
  Country: US (occurrence: US)
  Receive Date: 20191203
  Receipt Date: 20191203
  Transmission Date: 20200122
  Serious: Yes (Hospitalization)
  Sender: FDA-Public Use
  Company Number: None

PATIENT
  Age: 89 Year
  Sex: Male

DRUGS (1)
  1. REVLIMID [Suspect]
     Active Substance: LENALIDOMIDE
     Indication: PLASMA CELL MYELOMA
     Dosage: ?          OTHER FREQUENCY:DAILY FOR 21D /28D;?
     Route: 048
     Dates: start: 20190507, end: 20190725

REACTIONS (3)
  - Sinus node dysfunction [None]
  - Cardiac pacemaker insertion [None]
  - Pyrexia [None]

NARRATIVE: CASE EVENT DATE: 20190725
